FAERS Safety Report 22244234 (Version 1)
Quarter: 2023Q2

REPORT INFORMATION
  Report Type: Spontaneous
  Country: None (occurrence: US)
  Receive Date: 20230424
  Receipt Date: 20230424
  Transmission Date: 20230722
  Serious: No
  Sender: FDA-Public Use
  Company Number: US-Yung Shin Pharmaceutical Ind.  Co., Ltd.-2140703

PATIENT
  Age: 40 Year
  Sex: Female

DRUGS (1)
  1. CEFACLOR [Suspect]
     Active Substance: CEFACLOR
     Route: 048

REACTIONS (2)
  - Urticaria [Unknown]
  - Rash [Unknown]
